FAERS Safety Report 5652536-3 (Version None)
Quarter: 2008Q1

REPORT INFORMATION
  Report Type: 
  Country: None (occurrence: None)
  Receive Date: 20080305
  Receipt Date: 20080305
  Transmission Date: 20080703
  Serious: Yes (Life-Threatening, Hospitalization)
  Sender: FDA-Public Use
  Company Number: None

PATIENT
  Age: 67 Year
  Sex: Female
  Weight: 61.2 kg

DRUGS (9)
  1. OLANZAPINE [Suspect]
     Indication: ANXIETY
     Dosage: 2.5MG QHS PRN PO
     Route: 048
     Dates: start: 20070608, end: 20070608
  2. OLANZAPINE [Suspect]
     Indication: SLEEP DISORDER
     Dosage: 2.5MG QHS PRN PO
     Route: 048
     Dates: start: 20070608, end: 20070608
  3. SODIUM FERRIC GLUCONATE COMPLEX [Suspect]
     Indication: IRON DEFICIENCY ANAEMIA
     Dosage: 125MG DAILY IV
     Route: 042
     Dates: start: 20070605, end: 20070608
  4. WARFARIN SODIUM [Concomitant]
  5. LORAZEPAM [Concomitant]
  6. EDECRINE [Concomitant]
  7. LOMOTIL [Concomitant]
  8. LUNESTA [Concomitant]
  9. AMLODIPINE [Concomitant]

REACTIONS (4)
  - ANGIOEDEMA [None]
  - CATHETER RELATED INFECTION [None]
  - MENTAL STATUS CHANGES [None]
  - RESPIRATORY FAILURE [None]
